FAERS Safety Report 24420053 (Version 2)
Quarter: 2024Q4

REPORT INFORMATION
  Report Type: Report from Study
  Country: US (occurrence: US)
  Receive Date: 20241010
  Receipt Date: 20241018
  Transmission Date: 20250115
  Serious: No
  Sender: ROCHE
  Company Number: US-ROCHE-3525080

PATIENT
  Age: 45 Year
  Sex: Male

DRUGS (2)
  1. CATHFLO ACTIVASE [Suspect]
     Active Substance: ALTEPLASE
     Indication: Product used for unknown indication
     Dosage: DATE OF SERVICE: 11/JAN/2024
     Route: 065
  2. PULMOZYME [Suspect]
     Active Substance: DORNASE ALFA
     Indication: Chronic obstructive pulmonary disease
     Route: 065

REACTIONS (3)
  - No adverse event [Unknown]
  - Off label use [Unknown]
  - Off label use [Unknown]
